FAERS Safety Report 8129922-5 (Version None)
Quarter: 2012Q1

REPORT INFORMATION
  Report Type: 
  Country: None (occurrence: None)
  Receive Date: 20120210
  Receipt Date: 20120207
  Transmission Date: 20120608
  Serious: Yes (Other)
  Sender: FDA-Public Use
  Company Number: US-PFIZER INC-2012033312

PATIENT
  Age: 58 Year
  Sex: Female
  Weight: 83.447 kg

DRUGS (5)
  1. SINGULAIR [Concomitant]
     Dosage: UNK
  2. WELCHOL [Concomitant]
     Dosage: UNK
  3. ZITHROMAX [Suspect]
     Dosage: UNK
  4. METFORMIN HYDROCHLORIDE [Concomitant]
     Dosage: UNK
  5. ZYRTEC [Concomitant]
     Dosage: UNK

REACTIONS (1)
  - ANAPHYLACTIC REACTION [None]
